FAERS Safety Report 4658559-5 (Version None)
Quarter: 2005Q2

REPORT INFORMATION
  Report Type: 
  Country: None (occurrence: None)
  Receive Date: 20050511
  Receipt Date: 20050503
  Transmission Date: 20051028
  Serious: Yes (Hospitalization)
  Sender: FDA-Public Use
  Company Number: US-BOEHRINGER INGELHEIM PHARMACEUTICALS, INC.-2005-BP-07393BP

PATIENT
  Sex: Male
  Weight: 77.1 kg

DRUGS (5)
  1. FLOMAX [Suspect]
     Indication: URINARY TRACT DISORDER
     Route: 048
     Dates: start: 20041019
  2. OXYBUTYNIN HYDROCHLORIDE [Suspect]
     Indication: URINARY TRACT DISORDER
     Route: 048
     Dates: start: 20041118, end: 20041203
  3. COUMADIN [Concomitant]
  4. CENTRUM [Concomitant]
     Indication: GENERAL PHYSICAL CONDITION
     Route: 048
  5. OCCUPLEX [Concomitant]
     Indication: GENERAL PHYSICAL CONDITION
     Route: 048

REACTIONS (1)
  - INTESTINAL OBSTRUCTION [None]
